FAERS Safety Report 9760469 (Version 1)
Quarter: 2013Q4

REPORT INFORMATION
  Report Type: Spontaneous
  Country: US (occurrence: US)
  Receive Date: 20131216
  Receipt Date: 20131216
  Transmission Date: 20140711
  Serious: Yes (Hospitalization)
  Sender: FDA-Public Use
  Company Number: US-BRISTOL-MYERS SQUIBB COMPANY-19886043

PATIENT
  Age: 58 Year
  Sex: Female

DRUGS (4)
  1. KOMBIGLYZE XR [Suspect]
     Dosage: 1DF:2.5/1000MG
  2. CRESTOR [Concomitant]
  3. ANTARA [Concomitant]
  4. ENBREL [Concomitant]

REACTIONS (1)
  - Pancreatitis acute [Recovering/Resolving]
